FAERS Safety Report 7136247-3 (Version None)
Quarter: 2010Q4

REPORT INFORMATION
  Report Type: 
  Country: None (occurrence: None)
  Receive Date: 20101206
  Receipt Date: 20101124
  Transmission Date: 20110411
  Serious: No
  Sender: FDA-Public Use
  Company Number: US-BIOGENIDEC-2010BI013338

PATIENT
  Sex: Female

DRUGS (4)
  1. TYSABRI [Suspect]
     Indication: MULTIPLE SCLEROSIS
     Route: 042
     Dates: start: 20100405, end: 20100901
  2. COUMADIN [Concomitant]
     Indication: THROMBOSIS
     Dates: start: 20101101
  3. COUMADIN [Concomitant]
     Dates: start: 20101101
  4. COUMADIN [Concomitant]
     Indication: PULMONARY THROMBOSIS
     Dates: start: 20101101

REACTIONS (22)
  - ANHIDROSIS [None]
  - ASTHENIA [None]
  - BURNING SENSATION [None]
  - DISTURBANCE IN ATTENTION [None]
  - DYSPNOEA [None]
  - ERYTHEMA [None]
  - FEELING ABNORMAL [None]
  - GAIT DISTURBANCE [None]
  - HEADACHE [None]
  - HYPOAESTHESIA FACIAL [None]
  - HYPOAESTHESIA ORAL [None]
  - INCONTINENCE [None]
  - MEMORY IMPAIRMENT [None]
  - MONOPLEGIA [None]
  - MUSCLE SPASMS [None]
  - OEDEMA PERIPHERAL [None]
  - PAIN IN EXTREMITY [None]
  - SENSORY DISTURBANCE [None]
  - SOPOR [None]
  - SPEECH DISORDER [None]
  - TEMPERATURE INTOLERANCE [None]
  - WOUND [None]
